FAERS Safety Report 17827033 (Version 1)
Quarter: 2020Q2

REPORT INFORMATION
  Report Type: Spontaneous
  Country: GB (occurrence: MY)
  Receive Date: 20200527
  Receipt Date: 20200527
  Transmission Date: 20200714
  Serious: Yes (Other)
  Sender: FDA-Public Use
  Company Number: GB-CIPLA LTD.-2020MY03524

PATIENT

DRUGS (1)
  1. EFAVIR (EFAVIRENZ) [Suspect]
     Active Substance: EFAVIRENZ
     Indication: RETROVIRAL INFECTION
     Dosage: 600 MILLIGRAM, QD
     Route: 048

REACTIONS (2)
  - Conjunctivitis [Recovering/Resolving]
  - Oral candidiasis [Recovering/Resolving]
